FAERS Safety Report 8785990 (Version 1)
Quarter: 2012Q4

REPORT INFORMATION
  Report Type: Spontaneous
  Country: ZA (occurrence: None)
  Receive Date: 20120905
  Receipt Date: 20120905
  Transmission Date: 20130627
  Serious: Yes (Death, Life-Threatening)
  Sender: FDA-Public Use
  Company Number: FK201202552

PATIENT
  Age: 83 Year
  Sex: Female

DRUGS (1)
  1. MORPHINE SULFATE [Suspect]
     Route: 042
     Dates: start: 20120703, end: 20120703

REACTIONS (2)
  - Hypertension [None]
  - Aortic valve repair [None]
